FAERS Safety Report 7593183-6 (Version None)
Quarter: 2011Q3

REPORT INFORMATION
  Report Type: 
  Country: None (occurrence: None)
  Receive Date: 20110706
  Receipt Date: 20110621
  Transmission Date: 20111222
  Serious: Yes (Other)
  Sender: FDA-Public Use
  Company Number: FR-KINGPHARMUSA00001-K201100693

PATIENT
  Sex: Female
  Weight: 124.72 kg

DRUGS (5)
  1. SEROQUEL [Suspect]
     Dosage: 350 MG, QD
     Route: 048
  2. SEROQUEL [Suspect]
     Indication: SCHIZOAFFECTIVE DISORDER BIPOLAR TYPE
     Dosage: 450 MG, QD
     Route: 048
  3. ESCITALOPRAM [Concomitant]
     Indication: ANXIETY
     Dosage: 10 MG, QD
  4. VALPROATE SODIUM [Concomitant]
     Indication: AFFECTIVE DISORDER
     Dosage: 800 MG, QD
  5. ALTACE [Suspect]
     Indication: RENAL VESSEL DISORDER
     Dosage: UNK
     Route: 048

REACTIONS (5)
  - ORTHOSTATIC HYPOTENSION [None]
  - ANXIETY [None]
  - DIVERTICULITIS [None]
  - DIZZINESS [None]
  - DIARRHOEA [None]
